FAERS Safety Report 8087708-4 (Version None)
Quarter: 2012Q1

REPORT INFORMATION
  Report Type: 
  Country: None (occurrence: None)
  Receive Date: 20120128
  Receipt Date: 20110417
  Transmission Date: 20120608
  Serious: No
  Sender: FDA-Public Use
  Company Number: US-ABBOTT-11P-163-0721111-00

PATIENT
  Age: 43 Year
  Sex: Male

DRUGS (4)
  1. METOPROLOL TARTRATE [Concomitant]
     Indication: HYPERTENSION
  2. HUMIRA [Suspect]
     Indication: PSORIASIS
     Dosage: LOADING DOSE
     Dates: start: 20110201, end: 20110304
  3. EXFORGE HCT [Concomitant]
     Indication: HYPERTENSION
     Dosage: 5-160-12.5 MG
  4. OXYCODONE HCL AND ACETAMINOPHEN [Concomitant]
     Indication: PAIN
     Dosage: TWO TABLETS PER DAY 10/325 MG

REACTIONS (2)
  - PSORIASIS [None]
  - ROTATOR CUFF REPAIR [None]
